FAERS Safety Report 11105167 (Version 2)
Quarter: 2018Q2

REPORT INFORMATION
  Report Type: Spontaneous
  Country: US (occurrence: US)
  Receive Date: 20150511
  Receipt Date: 20180608
  Transmission Date: 20180711
  Serious: Yes (Hospitalization, Other)
  Sender: FDA-Public Use
  Company Number: US-ENDO PHARMACEUTICALS INC.-2015-000797

PATIENT
  Age: 58 Year
  Sex: Male

DRUGS (1)
  1. TESTIM [Suspect]
     Active Substance: TESTOSTERONE
     Indication: HORMONE REPLACEMENT THERAPY
     Dosage: UNK UNKNOWN, UNKNOWN
     Route: 062
     Dates: start: 20070124, end: 201405

REACTIONS (7)
  - Anhedonia [Unknown]
  - Atrial fibrillation [Unknown]
  - Pain [Unknown]
  - Physical disability [Unknown]
  - Fear [Unknown]
  - Coronary artery disease [Unknown]
  - Coronary artery disease [Unknown]

NARRATIVE: CASE EVENT DATE: 201107
